FAERS Safety Report 20159957 (Version 1)
Quarter: 2021Q4

REPORT INFORMATION
  Report Type: Spontaneous
  Country: GB (occurrence: CG)
  Receive Date: 20211208
  Receipt Date: 20211208
  Transmission Date: 20220303
  Serious: Yes (Death, Hospitalization)
  Sender: FDA-Public Use
  Company Number: GB-NOVARTISPH-NVSC2021CG279603

PATIENT
  Age: 60 Year
  Sex: Female

DRUGS (1)
  1. ARTEMETHER\LUMEFANTRINE [Suspect]
     Active Substance: ARTEMETHER\LUMEFANTRINE
     Indication: Plasmodium falciparum infection
     Dosage: UNK (80 MG, 480 MG)
     Route: 048

REACTIONS (2)
  - Haemolysis [Fatal]
  - Acute kidney injury [Not Recovered/Not Resolved]
